FAERS Safety Report 7685792-0 (Version None)
Quarter: 2011Q3

REPORT INFORMATION
  Report Type: 
  Country: None (occurrence: None)
  Receive Date: 20110815
  Receipt Date: 20110815
  Transmission Date: 20111222
  Serious: No
  Sender: FDA-Public Use
  Company Number: None

PATIENT
  Sex: Female
  Weight: 87.089 kg

DRUGS (1)
  1. PRAMIPEXOLE DIHYDROCHLORIDE [Suspect]
     Indication: RESTLESS LEGS SYNDROME
     Dosage: DAILY
     Route: 048
     Dates: start: 20110515, end: 20110729

REACTIONS (5)
  - DIZZINESS [None]
  - PRODUCT COMMINGLING [None]
  - FATIGUE [None]
  - SOMNOLENCE [None]
  - MALAISE [None]
